FAERS Safety Report 7077757-7 (Version None)
Quarter: 2010Q4

REPORT INFORMATION
  Report Type: 
  Country: None (occurrence: None)
  Receive Date: 20101101
  Receipt Date: 20101008
  Transmission Date: 20110411
  Serious: Yes (Hospitalization)
  Sender: FDA-Public Use
  Company Number: PHHO2010US14174

PATIENT
  Sex: Female
  Weight: 61 kg

DRUGS (7)
  1. EXELON [Suspect]
     Indication: DEMENTIA ALZHEIMER'S TYPE
     Dosage: 4.6MG, DAY
     Route: 062
     Dates: start: 20100904
  2. EXELON [Suspect]
  3. BLINDED NO TREATMENT RECEIVED NOMED [Suspect]
  4. LISINOPRIL [Suspect]
     Indication: HYPERTENSION
  5. GLIPTIDE [Concomitant]
     Indication: DIABETES MELLITUS
  6. LEXAPRO [Concomitant]
     Indication: DEPRESSION
  7. MIRTAZAPINE [Concomitant]
     Indication: DEPRESSION

REACTIONS (11)
  - DIZZINESS [None]
  - EAR HAEMORRHAGE [None]
  - FALL [None]
  - HAEMATOMA [None]
  - HEADACHE [None]
  - LOSS OF CONSCIOUSNESS [None]
  - PNEUMOCEPHALUS [None]
  - SKIN LACERATION [None]
  - SKULL FRACTURE [None]
  - SUBARACHNOID HAEMORRHAGE [None]
  - VERTIGO POSITIONAL [None]
